FAERS Safety Report 8031168 (Version 5)
Quarter: 2012Q4

REPORT INFORMATION
  Report Type: 
  Country: US (occurrence: US)
  Receive Date: 20110712
  Receipt Date: 20120904
  Transmission Date: 20130627
  Serious: Yes (Hospitalization)
  Sender: FDA-Public Use
  Company Number: US-ACTELION-A-US2011-51272

PATIENT
  Age: 53 Year
  Sex: Male

DRUGS (3)
  1. TRACLEER [Suspect]
     Indication: PULMONARY ARTERIAL HYPERTENSION
     Dosage: UNK
     Route: 048
     Dates: start: 20110301
  2. ASPIRIN [Concomitant]
  3. PLAVIX [Concomitant]

REACTIONS (6)
  - Chronic obstructive pulmonary disease [Unknown]
  - Thyroid disorder [Unknown]
  - Dyspnoea [Unknown]
  - Syncope [Unknown]
  - Dizziness [Unknown]
  - Headache [Unknown]
